APPROVED DRUG PRODUCT: EDARAVONE
Active Ingredient: EDARAVONE
Strength: 60MG/100ML (0.6MG/ML)
Dosage Form/Route: SOLUTION;INTRAVENOUS
Application: A215917 | Product #001 | TE Code: AP
Applicant: DR REDDYS LABORATORIES LTD
Approved: May 6, 2024 | RLD: No | RS: No | Type: RX